FAERS Safety Report 19048345 (Version 1)
Quarter: 2021Q1

REPORT INFORMATION
  Report Type: Spontaneous
  Country: CN (occurrence: CN)
  Receive Date: 20210323
  Receipt Date: 20210323
  Transmission Date: 20210420
  Serious: Yes (Other)
  Sender: FDA-Public Use
  Company Number: CN-ELI_LILLY_AND_COMPANY-CN202103005577

PATIENT
  Age: 16 Year
  Sex: Male
  Weight: 105 kg

DRUGS (5)
  1. SODIUM CHLORIDE. [Concomitant]
     Active Substance: SODIUM CHLORIDE
     Dosage: 500 ML, DAILY
     Route: 041
     Dates: start: 20210227, end: 20210228
  2. NUO XIN [Suspect]
     Active Substance: CISPLATIN
     Indication: NASOPHARYNGEAL TUMOUR
     Dosage: 47 MG, DAILY
     Route: 041
     Dates: start: 20210227, end: 20210228
  3. SODIUM CHLORIDE. [Concomitant]
     Active Substance: SODIUM CHLORIDE
     Indication: VEHICLE SOLUTION USE
     Dosage: 100 ML, DAILY
     Route: 041
     Dates: start: 20210227, end: 20210227
  4. KEYTRUDA [Suspect]
     Active Substance: PEMBROLIZUMAB
     Indication: NASOPHARYNGEAL TUMOUR
     Dosage: 200 MG, DAILY
     Route: 041
     Dates: start: 20210227, end: 20210227
  5. GEMZAR [Suspect]
     Active Substance: GEMCITABINE HYDROCHLORIDE
     Indication: NASOPHARYNGEAL TUMOUR
     Dosage: 2 G, DAILY
     Route: 041
     Dates: start: 20210227, end: 20210227

REACTIONS (2)
  - Hyperpyrexia [Recovered/Resolved]
  - Off label use [Unknown]

NARRATIVE: CASE EVENT DATE: 20210227
